FAERS Safety Report 16720434 (Version 1)
Quarter: 2019Q3

REPORT INFORMATION
  Report Type: Spontaneous
  Country: US (occurrence: US)
  Receive Date: 20190820
  Receipt Date: 20190820
  Transmission Date: 20191005
  Serious: No
  Sender: FDA-Public Use
  Company Number: US-BEH-2019105486

PATIENT
  Age: 67 Year
  Sex: Female

DRUGS (2)
  1. PRIVIGEN [Suspect]
     Active Substance: HUMAN IMMUNOGLOBULIN G
     Dosage: 20 GRAM, EVERY DAY FOR 5 DAYS
     Route: 042
     Dates: start: 20180119
  2. BACLOFEN. [Concomitant]
     Active Substance: BACLOFEN

REACTIONS (3)
  - Gait disturbance [Not Recovered/Not Resolved]
  - Sluggishness [Not Recovered/Not Resolved]
  - Unevaluable event [Not Recovered/Not Resolved]
